FAERS Safety Report 21222845 (Version 12)
Quarter: 2023Q4

REPORT INFORMATION
  Report Type: Spontaneous
  Country: CA (occurrence: CA)
  Receive Date: 20220817
  Receipt Date: 20231101
  Transmission Date: 20240109
  Serious: Yes (Other)
  Sender: FDA-Public Use
  Company Number: CA-PFIZER INC-202201051473

PATIENT
  Age: 67 Year
  Sex: Female
  Weight: 68 kg

DRUGS (4)
  1. ABRILADA [Suspect]
     Active Substance: ADALIMUMAB-AFZB
     Indication: Crohn^s disease
     Dosage: 40 MG EVERY 2 WEEKS
     Route: 058
     Dates: start: 20220421
  2. ABRILADA [Suspect]
     Active Substance: ADALIMUMAB-AFZB
     Dosage: 160MG WEEK0, 80MG WEEK2, THEN Q2WEEKS STARTING WEEK4 -ON HOLD
     Route: 058
     Dates: start: 20220520
  3. ABRILADA [Suspect]
     Active Substance: ADALIMUMAB-AFZB
     Dosage: 40 MG EVERY 2 WEEKS
     Route: 058
     Dates: start: 20220727
  4. ABRILADA [Suspect]
     Active Substance: ADALIMUMAB-AFZB
     Dosage: 40 MG EVERY 2 WEEKS
     Route: 058
     Dates: start: 20221228

REACTIONS (15)
  - Liver injury [Unknown]
  - Hepatic cirrhosis [Unknown]
  - Nephrolithiasis [Not Recovered/Not Resolved]
  - COVID-19 [Unknown]
  - Injection site pain [Unknown]
  - Injection site bruising [Unknown]
  - Headache [Unknown]
  - Lymphadenitis [Unknown]
  - Pyrexia [Not Recovered/Not Resolved]
  - Anxiety [Not Recovered/Not Resolved]
  - Sleep disorder [Unknown]
  - Constipation [Not Recovered/Not Resolved]
  - Condition aggravated [Not Recovered/Not Resolved]
  - Chills [Not Recovered/Not Resolved]
  - Limb injury [Not Recovered/Not Resolved]

NARRATIVE: CASE EVENT DATE: 20220101
